FAERS Safety Report 8249429-4 (Version None)
Quarter: 2012Q1

REPORT INFORMATION
  Report Type: 
  Country: None (occurrence: None)
  Receive Date: 20120327
  Receipt Date: 20120306
  Transmission Date: 20120608
  Serious: Yes (Death, Hospitalization)
  Sender: FDA-Public Use
  Company Number: 2011PROUSA00898

PATIENT
  Age: 70 Year
  Sex: Male
  Weight: 90.7 kg

DRUGS (10)
  1. ASPIRIN [Concomitant]
  2. TYLENOL	/00020001/ (PARACETAMOL) [Concomitant]
  3. FOLIC ACID [Concomitant]
  4. ATORVASTATIN (ATORVASTATIN)(PARACETAMOL) [Concomitant]
  5. INSULIN (INSULIN) [Concomitant]
  6. AVODART [Concomitant]
  7. PROVENGE [Suspect]
     Indication: PROSTATE CANCER METASTATIC
     Dosage: 250 ML, SINGLE, INTRAVENOUS
     Route: 042
     Dates: start: 20111209, end: 20111209
  8. ZESTRIL [Concomitant]
  9. TOPROL-XL [Concomitant]
  10. DETROL [Concomitant]

REACTIONS (6)
  - THROMBOCYTOPENIA [None]
  - ANAEMIA [None]
  - ASTHENIA [None]
  - BACK PAIN [None]
  - PYREXIA [None]
  - BACTERAEMIA [None]
